FAERS Safety Report 12365570 (Version 4)
Quarter: 2018Q3

REPORT INFORMATION
  Report Type: Spontaneous
  Country: US (occurrence: US)
  Receive Date: 20160512
  Receipt Date: 20180912
  Transmission Date: 20181010
  Serious: Yes (Life-Threatening, Hospitalization, Other)
  Sender: FDA-Public Use
  Company Number: US-ROCHE-1756608

PATIENT
  Sex: Male

DRUGS (2)
  1. RIBAVIRIN. [Suspect]
     Active Substance: RIBAVIRIN
     Indication: HEPATITIS C
     Route: 065
  2. PEGASYS [Suspect]
     Active Substance: PEGINTERFERON ALFA-2A
     Indication: HEPATITIS C
     Route: 065
     Dates: start: 201202, end: 201208

REACTIONS (12)
  - Hypertension [Unknown]
  - Mania [Unknown]
  - Panic attack [Unknown]
  - Anxiety [Unknown]
  - Fatigue [Unknown]
  - Agoraphobia [Unknown]
  - Suicide attempt [Unknown]
  - Communication disorder [Unknown]
  - Cardiac disorder [Unknown]
  - Suicidal ideation [Unknown]
  - Depression [Unknown]
  - Paranoia [Unknown]
